FAERS Safety Report 7250657-5 (Version None)
Quarter: 2011Q1

REPORT INFORMATION
  Report Type: 
  Country: None (occurrence: None)
  Receive Date: 20110128
  Receipt Date: 20110119
  Transmission Date: 20110831
  Serious: Yes (Hospitalization)
  Sender: FDA-Public Use
  Company Number: ES-JNJFOC-20110104843

PATIENT
  Age: 32 Year
  Sex: Male

DRUGS (5)
  1. AMOXICILLIN AND CLAVULANATE POTASSIUM [Suspect]
     Indication: INFECTION
     Route: 065
  2. TAVANIC [Suspect]
     Indication: PRODUCT USED FOR UNKNOWN INDICATION
     Route: 048
  3. CLEXANE [Suspect]
     Indication: PRODUCT USED FOR UNKNOWN INDICATION
     Dosage: 2000 IU
     Route: 065
  4. BENZYLPENICILLIN SODIUM [Suspect]
     Indication: BACTERAEMIA
     Dosage: 7.5 MILLION IU
     Route: 065
  5. GENTA-GOBENS [Suspect]
     Indication: BACTERAEMIA
     Route: 065

REACTIONS (1)
  - CHOLESTASIS [None]
